FAERS Safety Report 4420116-3 (Version None)
Quarter: 2004Q3

REPORT INFORMATION
  Report Type: 
  Country: None (occurrence: None)
  Receive Date: 20040804
  Receipt Date: 20040722
  Transmission Date: 20050211
  Serious: No
  Sender: FDA-Public Use
  Company Number: 2004UW15503

PATIENT
  Sex: Female

DRUGS (1)
  1. XYLOCAINE [Suspect]
     Indication: EYE OPERATION
     Dates: start: 20040720, end: 20040720

REACTIONS (1)
  - INTRAOCULAR PRESSURE INCREASED [None]
